FAERS Safety Report 7496072-0 (Version None)
Quarter: 2011Q2

REPORT INFORMATION
  Report Type: 
  Country: None (occurrence: None)
  Receive Date: 20110523
  Receipt Date: 20110518
  Transmission Date: 20111010
  Serious: Yes (Death, Hospitalization, Other)
  Sender: FDA-Public Use
  Company Number: CO-PFIZER INC-2011081541

PATIENT
  Age: 68 Year
  Sex: Female
  Weight: 66 kg

DRUGS (10)
  1. OLMESARTAN MEDOXOMIL [Suspect]
     Indication: HYPERTENSION
     Dosage: [OLMESARTAN 20 MG / HYDROCHLOROTHIAZIDE 12.5 MG], DAILY
  2. GLIBENCLAMIDE [Concomitant]
     Dosage: 5 MG, 3X/DAY
  3. LIPITOR [Suspect]
     Indication: DYSLIPIDAEMIA
     Dosage: 10 MG, 1X/DAY
  4. FUROSEMIDE [Concomitant]
     Dosage: 40 MG, 1X/DAY
  5. LOSARTAN [Concomitant]
     Dosage: 50 MG EVERY 12 H
  6. METFORMIN [Concomitant]
     Dosage: 850 MG, 2X/DAY
  7. HYDROCHLOROTHIAZDE TAB [Concomitant]
     Dosage: 5 MG, 1X/DAY
  8. FOLIC ACID [Concomitant]
     Dosage: 1 MG, 1X/DAY
  9. OMEPRAZOLE [Concomitant]
     Dosage: UNK
  10. ACETYLSALICYLIC ACID [Concomitant]
     Dosage: 100 MG, 1X/DAY

REACTIONS (16)
  - SEPSIS [None]
  - HYPERTENSION [None]
  - URINARY TRACT INFECTION [None]
  - THROMBOPHLEBITIS [None]
  - URAEMIC ENCEPHALOPATHY [None]
  - NORMOCHROMIC NORMOCYTIC ANAEMIA [None]
  - RENAL FAILURE [None]
  - DIABETES MELLITUS [None]
  - HYPERKALAEMIA [None]
  - PHLEBITIS [None]
  - DIABETIC KETOACIDOSIS [None]
  - STATUS EPILEPTICUS [None]
  - VULVAL DISORDER [None]
  - PYREXIA [None]
  - DEATH [None]
  - ESCHAR [None]
